FAERS Safety Report 17228489 (Version 1)
Quarter: 2020Q1

REPORT INFORMATION
  Report Type: Spontaneous
  Country: RU (occurrence: RU)
  Receive Date: 20200103
  Receipt Date: 20200103
  Transmission Date: 20200409
  Serious: Yes (Hospitalization)
  Sender: FDA-Public Use
  Company Number: RU-STRIDES ARCOLAB LIMITED-2019SP013480

PATIENT
  Age: 26 Year
  Sex: Female

DRUGS (2)
  1. ZOLPIDEM [Suspect]
     Active Substance: ZOLPIDEM TARTRATE
     Indication: INVESTIGATION
     Dosage: 10 MILLIGRAM, SINGLE
     Dates: start: 2019, end: 2019
  2. ZOLPIDEM [Suspect]
     Active Substance: ZOLPIDEM TARTRATE
     Dosage: 10 MILLIGRAM, SINGLE
     Dates: start: 2019, end: 2019

REACTIONS (6)
  - Movement disorder [Unknown]
  - Chills [Unknown]
  - Agitation [Unknown]
  - Partial seizures [Recovered/Resolved]
  - Paradoxical drug reaction [Recovered/Resolved]
  - Hypertonia [Recovered/Resolved]

NARRATIVE: CASE EVENT DATE: 2019
